FAERS Safety Report 21844610 (Version 1)
Quarter: 2023Q1

REPORT INFORMATION
  Report Type: Spontaneous
  Country: FR (occurrence: FR)
  Receive Date: 20230110
  Receipt Date: 20230110
  Transmission Date: 20230417
  Serious: Yes (Hospitalization)
  Sender: FDA-Public Use
  Company Number: None

PATIENT
  Age: 26 Year
  Sex: Female

DRUGS (2)
  1. ACETAMINOPHEN [Suspect]
     Active Substance: ACETAMINOPHEN
     Indication: Pericardial effusion
     Dosage: UNK
     Route: 065
     Dates: end: 20221107
  2. ASPIRIN [Suspect]
     Active Substance: ASPIRIN
     Indication: Pericardial effusion
     Dosage: 3 GRAM, QD
     Route: 048
     Dates: start: 20221030, end: 20221107

REACTIONS (1)
  - Mixed liver injury [Not Recovered/Not Resolved]

NARRATIVE: CASE EVENT DATE: 20221101
